FAERS Safety Report 9964014 (Version 1)
Quarter: 2014Q1

REPORT INFORMATION
  Report Type: Spontaneous
  Country: CA (occurrence: CA)
  Receive Date: 20140305
  Receipt Date: 20140305
  Transmission Date: 20141002
  Serious: Yes (Death)
  Sender: FDA-Public Use
  Company Number: CA-AMGEN-CANSP2014014608

PATIENT
  Age: 64 Year
  Sex: Female

DRUGS (1)
  1. SENSIPAR [Suspect]
     Indication: NEPHROPATHY
     Dosage: 60 MG, QD
     Route: 065
     Dates: start: 20110526

REACTIONS (1)
  - Death [Fatal]
